FAERS Safety Report 21156513 (Version 1)
Quarter: 2022Q3

REPORT INFORMATION
  Report Type: Spontaneous
  Country: US (occurrence: None)
  Receive Date: 20220801
  Receipt Date: 20220801
  Transmission Date: 20221027
  Serious: Yes (Hospitalization)
  Sender: FDA-Public Use
  Company Number: None

PATIENT
  Age: 76 Year
  Sex: Male

DRUGS (1)
  1. VALACYCLOVIR HYDROCHLORIDE [Suspect]
     Active Substance: VALACYCLOVIR HYDROCHLORIDE
     Indication: Substance-induced psychotic disorder
     Dates: start: 20220602, end: 20220610

REACTIONS (6)
  - Asthenia [None]
  - Diplopia [None]
  - Fall [None]
  - Dialysis [None]
  - Hallucination, visual [None]
  - Mental status changes [None]

NARRATIVE: CASE EVENT DATE: 20220610
